FAERS Safety Report 25030563 (Version 1)
Quarter: 2025Q1

REPORT INFORMATION
  Report Type: Spontaneous
  Country: IT (occurrence: IT)
  Receive Date: 20250303
  Receipt Date: 20250303
  Transmission Date: 20250409
  Serious: Yes (Death, Other)
  Sender: STRIDES
  Company Number: IT-STRIDES ARCOLAB LIMITED-2025SP002592

PATIENT
  Age: 46 Year
  Sex: Female

DRUGS (2)
  1. ETOPOSIDE [Suspect]
     Active Substance: ETOPOSIDE
     Indication: Neuroendocrine carcinoma
     Route: 065
     Dates: start: 202302
  2. CARBOPLATIN [Suspect]
     Active Substance: CARBOPLATIN
     Indication: Neuroendocrine carcinoma
     Route: 065
     Dates: start: 202302

REACTIONS (2)
  - Condition aggravated [Fatal]
  - Drug ineffective for unapproved indication [Fatal]

NARRATIVE: CASE EVENT DATE: 20230101
